FAERS Safety Report 24280466 (Version 1)
Quarter: 2024Q3

REPORT INFORMATION
  Report Type: Spontaneous
  Country: ES (occurrence: None)
  Receive Date: 20240904
  Receipt Date: 20240904
  Transmission Date: 20241016
  Serious: Yes (Hospitalization)
  Sender: ENCUBE ETHICALS
  Company Number: ES-Encube-001304

PATIENT
  Age: 53 Year
  Sex: Male

DRUGS (11)
  1. METRONIDAZOLE [Suspect]
     Active Substance: METRONIDAZOLE
     Indication: Diverticulitis
  2. DISULFIRAM [Suspect]
     Active Substance: DISULFIRAM
     Indication: Alcoholism
  3. CIPROFLOXACIN [Concomitant]
     Active Substance: CIPROFLOXACIN
     Indication: Diverticulitis
  4. LORMETAZEPAM [Concomitant]
     Active Substance: LORMETAZEPAM
  5. VALPROIC ACID [Concomitant]
     Active Substance: VALPROIC ACID
  6. LITHIUM [Concomitant]
     Active Substance: LITHIUM
  7. OLANZAPINE [Concomitant]
     Active Substance: OLANZAPINE
  8. BUPROPION [Concomitant]
     Active Substance: BUPROPION
  9. DESVENLAFAXINE [Concomitant]
     Active Substance: DESVENLAFAXINE
  10. ARIPIPRAZOLE [Concomitant]
     Active Substance: ARIPIPRAZOLE
  11. TRAZODONE [Concomitant]
     Active Substance: TRAZODONE HYDROCHLORIDE

REACTIONS (4)
  - Toxic encephalopathy [Recovered/Resolved]
  - Off label use [Unknown]
  - Drug interaction [Unknown]
  - Product prescribing error [Unknown]
